FAERS Safety Report 16808199 (Version 3)
Quarter: 2019Q4

REPORT INFORMATION
  Report Type: Report from Study
  Country: None (occurrence: US)
  Receive Date: 20190916
  Receipt Date: 20191017
  Transmission Date: 20200122
  Serious: Yes (Hospitalization, Other)
  Sender: FDA-Public Use
  Company Number: US-ABBVIE-19K-163-2921541-00

PATIENT
  Age: 59 Year
  Sex: Male

DRUGS (2)
  1. HUMIRA [Suspect]
     Active Substance: ADALIMUMAB
     Route: 058
     Dates: start: 201908, end: 201909
  2. HUMIRA [Suspect]
     Active Substance: ADALIMUMAB
     Indication: CROHN^S DISEASE
     Dosage: CITRATE FREE
     Route: 058
     Dates: start: 20190829, end: 2019

REACTIONS (6)
  - Blood potassium decreased [Recovering/Resolving]
  - Gait inability [Recovering/Resolving]
  - Rhabdomyolysis [Recovering/Resolving]
  - Electrolyte depletion [Unknown]
  - Asthenia [Unknown]
  - Muscle atrophy [Recovering/Resolving]

NARRATIVE: CASE EVENT DATE: 201909
